FAERS Safety Report 9647745 (Version 4)
Quarter: 2014Q1

REPORT INFORMATION
  Report Type: Spontaneous
  Country: US (occurrence: US)
  Receive Date: 20131028
  Receipt Date: 20140131
  Transmission Date: 20141002
  Serious: Yes (Death)
  Sender: FDA-Public Use
  Company Number: US-JNJFOC-20131015494

PATIENT
  Sex: Male

DRUGS (11)
  1. XARELTO [Suspect]
     Indication: CEREBROVASCULAR ACCIDENT PROPHYLAXIS
     Route: 048
     Dates: end: 20131018
  2. XARELTO [Suspect]
     Indication: ATRIAL FIBRILLATION
     Route: 048
     Dates: end: 20131018
  3. ASA 81 [Concomitant]
     Route: 065
  4. COREG [Concomitant]
     Route: 065
  5. LANTUS [Concomitant]
     Route: 065
  6. LISINOPRIL [Concomitant]
     Route: 065
  7. MAGNESIUM [Concomitant]
     Route: 065
  8. METFORMIN [Concomitant]
     Route: 065
  9. PRILOSEC [Concomitant]
     Route: 065
  10. ZOCOR [Concomitant]
     Route: 065
  11. COLACE [Concomitant]
     Route: 065

REACTIONS (10)
  - Death [Fatal]
  - Atrial fibrillation [Unknown]
  - Intestinal haemorrhage [Unknown]
  - Renal haemorrhage [Unknown]
  - Muscle haemorrhage [Unknown]
  - Coagulopathy [Unknown]
  - Haematoma [Unknown]
  - International normalised ratio increased [Unknown]
  - Haemorrhage [Unknown]
  - Blood disorder [Unknown]
